FAERS Safety Report 7971088-6 (Version None)
Quarter: 2011Q4

REPORT INFORMATION
  Report Type: 
  Country: None (occurrence: None)
  Receive Date: 20111212
  Receipt Date: 20111212
  Transmission Date: 20120403
  Serious: Yes (Hospitalization)
  Sender: FDA-Public Use
  Company Number: None

PATIENT
  Age: 60 Year
  Sex: Female
  Weight: 72.121 kg

DRUGS (1)
  1. SERTRALINE HYDROCHLORIDE [Suspect]
     Indication: DEPRESSION
     Dosage: 50MG
     Route: 048
     Dates: start: 20111208, end: 20111209

REACTIONS (23)
  - INAPPROPRIATE AFFECT [None]
  - TACHYPHRENIA [None]
  - PALPITATIONS [None]
  - MANIA [None]
  - CONVERSION DISORDER [None]
  - CRYING [None]
  - CHEST PAIN [None]
  - AGITATION [None]
  - AGGRESSION [None]
  - THINKING ABNORMAL [None]
  - ANKLE FRACTURE [None]
  - FEELING JITTERY [None]
  - EMOTIONAL DISORDER [None]
  - MORBID THOUGHTS [None]
  - DYSPNOEA [None]
  - HEART RATE INCREASED [None]
  - SCREAMING [None]
  - PAIN IN EXTREMITY [None]
  - POST-TRAUMATIC STRESS DISORDER [None]
  - DECREASED APPETITE [None]
  - HEADACHE [None]
  - PANIC ATTACK [None]
  - ENERGY INCREASED [None]
